FAERS Safety Report 25780173 (Version 1)
Quarter: 2025Q3

REPORT INFORMATION
  Report Type: Spontaneous
  Country: EU (occurrence: EU)
  Receive Date: 20250909
  Receipt Date: 20250909
  Transmission Date: 20251020
  Serious: Yes (Other)
  Sender: CALLIDITAS THERAPEUTICS AB
  Company Number: EU-STADA-01450452

PATIENT
  Age: 28 Year
  Sex: Male

DRUGS (1)
  1. BUDESONIDE [Suspect]
     Active Substance: BUDESONIDE
     Indication: Product used for unknown indication
     Dates: start: 20250601

REACTIONS (4)
  - Gastrointestinal haemorrhage [Recovered/Resolved]
  - Haemoglobin decreased [Unknown]
  - Helicobacter infection [Unknown]
  - Gastrointestinal ulcer [Unknown]
